FAERS Safety Report 5503760-1 (Version None)
Quarter: 2007Q4

REPORT INFORMATION
  Report Type: 
  Country: None (occurrence: None)
  Receive Date: 20071030
  Receipt Date: 20071030
  Transmission Date: 20080405
  Serious: Yes (Other)
  Sender: FDA-Public Use
  Company Number: None

PATIENT
  Age: 62 Year
  Sex: Female
  Weight: 91.6266 kg

DRUGS (2)
  1. LEVAQUIN [Suspect]
     Indication: INFECTION
     Dosage: 500 MG  ONCE  IV
     Route: 042
     Dates: start: 20071014, end: 20071014
  2. LEVAQUIN [Suspect]
     Dosage: 250 MG  DAILY  IV
     Route: 042
     Dates: start: 20071015, end: 20071018

REACTIONS (2)
  - BLOOD ALKALINE PHOSPHATASE INCREASED [None]
  - CREATININE RENAL CLEARANCE DECREASED [None]
